FAERS Safety Report 7933232-6 (Version None)
Quarter: 2011Q4

REPORT INFORMATION
  Report Type: 
  Country: None (occurrence: None)
  Receive Date: 20111122
  Receipt Date: 20111114
  Transmission Date: 20120403
  Serious: Yes (Other)
  Sender: FDA-Public Use
  Company Number: US-JNJFOC-20110100762

PATIENT
  Sex: Female
  Weight: 83.92 kg

DRUGS (5)
  1. CRESTOR [Concomitant]
     Indication: HYPERLIPIDAEMIA
     Route: 065
     Dates: start: 20101226
  2. ACETAMINOPHEN [Suspect]
     Route: 048
  3. CARDIZEM [Concomitant]
     Indication: PRODUCT USED FOR UNKNOWN INDICATION
     Route: 065
     Dates: start: 20101201
  4. ACETAMINOPHEN [Suspect]
     Indication: ARTHRALGIA
     Route: 048
     Dates: start: 20101229, end: 20101229
  5. LEVOTHYROXINE SODIUM [Concomitant]
     Indication: HYPOTHYROIDISM
     Dosage: FOR YEARS
     Route: 065
     Dates: start: 20050101

REACTIONS (1)
  - RASH GENERALISED [None]
